FAERS Safety Report 6032472-3 (Version None)
Quarter: 2008Q4

REPORT INFORMATION
  Report Type: 
  Country: None (occurrence: None)
  Receive Date: 20081224
  Receipt Date: 20080920
  Transmission Date: 20090506
  Serious: No
  Sender: FDA-Public Use
  Company Number: 2008PV036750

PATIENT
  Age: 81 Year
  Sex: Female

DRUGS (6)
  1. SYMLIN [Suspect]
     Indication: TYPE 2 DIABETES MELLITUS
     Dosage: 15 MCG;TID;SC
     Route: 058
     Dates: start: 20080915
  2. MACRODANTIN [Suspect]
     Indication: POLLAKIURIA
     Dosage: 100 MG;BID;SC
     Route: 058
     Dates: start: 20080919
  3. LANTUS [Concomitant]
  4. GLUCOPHAGE [Concomitant]
  5. ACTOS [Concomitant]
  6. NOVOLOG [Concomitant]

REACTIONS (3)
  - BLOOD GLUCOSE INCREASED [None]
  - DIARRHOEA [None]
  - POLLAKIURIA [None]
